FAERS Safety Report 7243800-5 (Version None)
Quarter: 2011Q1

REPORT INFORMATION
  Report Type: 
  Country: None (occurrence: None)
  Receive Date: 20110125
  Receipt Date: 20110111
  Transmission Date: 20110831
  Serious: Yes (Hospitalization, Other)
  Sender: FDA-Public Use
  Company Number: PHHY2011IT02613

PATIENT
  Age: 66 Year
  Sex: Male

DRUGS (1)
  1. PRAMIPEXOLE [Suspect]
     Indication: PARKINSON'S DISEASE
     Dosage: 3 MG, DAILY

REACTIONS (7)
  - OBSESSIVE THOUGHTS [None]
  - MEMORY IMPAIRMENT [None]
  - DEPRESSION [None]
  - CEREBRAL ATROPHY [None]
  - HYPERTENSIVE CRISIS [None]
  - EXCESSIVE EXERCISE [None]
  - IRRITABILITY [None]
